FAERS Safety Report 6094995-0 (Version None)
Quarter: 2009Q1

REPORT INFORMATION
  Report Type: 
  Country: None (occurrence: None)
  Receive Date: 20090227
  Receipt Date: 20090212
  Transmission Date: 20090719
  Serious: Yes (Hospitalization)
  Sender: FDA-Public Use
  Company Number: GR-ELI_LILLY_AND_COMPANY-GR200902002689

PATIENT
  Age: 62 Year
  Sex: Female
  Weight: 69 kg

DRUGS (5)
  1. FORTEO [Suspect]
     Indication: OSTEOPOROSIS
     Dosage: 20 UG, DAILY (1/D)
     Route: 058
     Dates: start: 20080101, end: 20081127
  2. IDEOS                              /00944201/ [Concomitant]
     Indication: OSTEOPOROSIS
     Dosage: UNK UNK, DAILY (1/D)
     Route: 048
     Dates: start: 20050101, end: 20081127
  3. IDEOS                              /00944201/ [Concomitant]
     Dosage: 400 IU, UNKNOWN
     Route: 065
     Dates: start: 20050101, end: 20081127
  4. OTHER ANTIINFL./ANTIRHEUM AGENTS, NON-STEROID [Concomitant]
     Indication: UPPER RESPIRATORY TRACT INFECTION
     Dosage: UNK, UNKNOWN
     Route: 048
     Dates: start: 20081116, end: 20081120
  5. ANTIBIOTICS [Concomitant]
     Indication: UPPER RESPIRATORY TRACT INFECTION
     Dosage: UNK, UNKNOWN
     Route: 065
     Dates: start: 20081116, end: 20081120

REACTIONS (2)
  - CHOLECYSTECTOMY [None]
  - PANCREATITIS ACUTE [None]
